FAERS Safety Report 11574968 (Version 1)
Quarter: 2015Q3

REPORT INFORMATION
  Report Type: Spontaneous
  Country: US (occurrence: US)
  Receive Date: 20150916
  Receipt Date: 20150916
  Transmission Date: 20151125
  Serious: No
  Sender: FDA-Public Use
  Company Number: US-ELI_LILLY_AND_COMPANY-US200911003987

PATIENT
  Sex: Female

DRUGS (1)
  1. FORTEO [Suspect]
     Active Substance: TERIPARATIDE
     Indication: OSTEOPOROSIS
     Dosage: UNK, UNK
     Dates: start: 20091104, end: 20091113

REACTIONS (6)
  - Inflammation [Recovering/Resolving]
  - Lymphadenopathy [Recovering/Resolving]
  - Paraesthesia [Recovering/Resolving]
  - Pain in jaw [Recovering/Resolving]
  - Pyrexia [Recovered/Resolved]
  - Jaw disorder [Recovering/Resolving]

NARRATIVE: CASE EVENT DATE: 20091108
